FAERS Safety Report 10455538 (Version 2)
Quarter: 2014Q4

REPORT INFORMATION
  Report Type: Spontaneous
  Country: US (occurrence: None)
  Receive Date: 20140912
  Receipt Date: 20141001
  Transmission Date: 20150528
  Serious: Yes (Hospitalization)
  Sender: FDA-Public Use
  Company Number: QSC-2014-0591

PATIENT
  Age: 60 Year
  Sex: Female
  Weight: 65.7 kg

DRUGS (23)
  1. H.P. ACTHAR [Suspect]
     Active Substance: CORTICOTROPIN
     Indication: SYSTEMIC LUPUS ERYTHEMATOSUS
     Route: 058
     Dates: start: 20140814, end: 20140826
  2. PROTONIX (PANTOPRAZOLE SODIUM SESQUIHYRATE) [Concomitant]
  3. TRAMADOL + ACETAMINOFEN MK (PARACETAMOL, TRAMADOL HYDROCHLORIDE) [Concomitant]
  4. ATELVIA (RISEDRONATE SODIUM) [Concomitant]
  5. VENTOLIN [Concomitant]
     Active Substance: ALBUTEROL SULFATE
  6. BUSPIRONE [Concomitant]
     Active Substance: BUSPIRONE HYDROCHLORIDE
  7. IBUPROFEN. [Concomitant]
     Active Substance: IBUPROFEN
  8. BIOTIN [Concomitant]
     Active Substance: BIOTIN
  9. VIVELLE DOT [Concomitant]
     Active Substance: ESTRADIOL
  10. PLAQUENIL (HYDROCHLOROQUINE SULFATE) [Concomitant]
  11. PEPCID / 00706001/ (FAMOTIDINE) [Concomitant]
  12. BUPROPION (BUPROPION HYDROCHLORIDE) [Concomitant]
  13. SIMVASTATIN. [Concomitant]
     Active Substance: SIMVASTATIN
  14. LISINOPRIL. [Concomitant]
     Active Substance: LISINOPRIL
  15. PHENERGAN [Concomitant]
     Active Substance: PROMETHAZINE HYDROCHLORIDE
  16. FLUTICASONE [Concomitant]
     Active Substance: FLUTICASONE\FLUTICASONE PROPIONATE
  17. REGLAN [Concomitant]
     Active Substance: METOCLOPRAMIDE HYDROCHLORIDE
  18. VITAMIN D3 [Concomitant]
     Active Substance: CHOLECALCIFEROL
  19. SINGULAIR [Concomitant]
     Active Substance: MONTELUKAST SODIUM
  20. PREDNISONE. [Concomitant]
     Active Substance: PREDNISONE
  21. FLEXERIL (CYLOBENZAPRINE HYDROCHLORIDE) [Concomitant]
  22. FISH OIL [Concomitant]
     Active Substance: FISH OIL
  23. LANSOPRAZOLE. [Concomitant]
     Active Substance: LANSOPRAZOLE

REACTIONS (7)
  - Chest discomfort [None]
  - Anxiety [None]
  - Cushingoid [None]
  - Gastrooesophageal reflux disease [None]
  - Condition aggravated [None]
  - Blood potassium decreased [None]
  - Dyspnoea [None]

NARRATIVE: CASE EVENT DATE: 20140827
